FAERS Safety Report 23821606 (Version 1)
Quarter: 2024Q2

REPORT INFORMATION
  Report Type: Spontaneous
  Country: US (occurrence: US)
  Receive Date: 20240506
  Receipt Date: 20240506
  Transmission Date: 20240716
  Serious: No
  Sender: FDA-Public Use
  Company Number: US-BRISTOL-MYERS SQUIBB COMPANY-2024-070274

PATIENT
  Age: 84 Year
  Sex: Female
  Weight: 78.47 kg

DRUGS (7)
  1. ELIQUIS [Suspect]
     Active Substance: APIXABAN
     Indication: Atrial fibrillation
     Route: 048
     Dates: start: 20240429
  2. ELIQUIS [Suspect]
     Active Substance: APIXABAN
     Route: 048
     Dates: start: 202404
  3. ELIQUIS [Suspect]
     Active Substance: APIXABAN
     Route: 048
     Dates: start: 20240501
  4. LOSARTAN [Concomitant]
     Active Substance: LOSARTAN
     Indication: Product used for unknown indication
  5. CARVEDILOL [Concomitant]
     Active Substance: CARVEDILOL
     Indication: Product used for unknown indication
  6. SPIRONOLACTONE [Concomitant]
     Active Substance: SPIRONOLACTONE
     Indication: Product used for unknown indication
  7. ROSUVASTATIN [Concomitant]
     Active Substance: ROSUVASTATIN
     Indication: Product used for unknown indication

REACTIONS (4)
  - Asthenia [Unknown]
  - Chest discomfort [Unknown]
  - Intentional product use issue [Unknown]
  - Insomnia [Unknown]

NARRATIVE: CASE EVENT DATE: 20240101
